FAERS Safety Report 8927647 (Version 2)
Quarter: 2013Q1

REPORT INFORMATION
  Report Type: Report from Study
  Country: CA (occurrence: CA)
  Receive Date: 20121127
  Receipt Date: 20130204
  Transmission Date: 20140127
  Serious: Yes (Life-Threatening)
  Sender: FDA-Public Use
  Company Number: CA-JNJFOC-20121109882

PATIENT
  Age: 59 Year
  Sex: Female
  Weight: 152.86 kg

DRUGS (1)
  1. STELARA [Suspect]
     Indication: PSORIASIS
     Dates: start: 201109

REACTIONS (1)
  - Deep vein thrombosis [Recovered/Resolved]
